FAERS Safety Report 8976021 (Version 1)
Quarter: 2012Q4

REPORT INFORMATION
  Report Type: 
  Country: US (occurrence: US)
  Receive Date: 20121219
  Receipt Date: 20121219
  Transmission Date: 20130627
  Serious: No
  Sender: FDA-Public Use
  Company Number: US-AMGEN-USASP2012057685

PATIENT
  Age: 69 Year
  Sex: Female
  Weight: 73.92 kg

DRUGS (10)
  1. XGEVA [Suspect]
     Indication: METASTASES TO BONE
     Dosage: 120 mg, q4wk
     Route: 058
     Dates: start: 20120625, end: 20120911
  2. XGEVA [Suspect]
     Indication: RENAL CELL CARCINOMA
  3. VITAMIN D [Concomitant]
     Dosage: UNK
  4. VITAMIN C [Concomitant]
     Dosage: UNK
  5. MULTIVITAMIN [Concomitant]
     Dosage: UNK
  6. ANTIHYPERTENSIVES [Concomitant]
     Dosage: UNK
  7. SUTENT [Concomitant]
     Dosage: 25 mg, qd
     Route: 048
     Dates: start: 20120711
  8. RESTORIL                           /00054301/ [Concomitant]
     Indication: SLEEP DISORDER
     Dosage: 15 mg, qd
     Route: 048
     Dates: start: 20120625
  9. COMPAZINE                          /00013302/ [Concomitant]
     Indication: NAUSEA
     Dosage: 10 mg, prn
     Route: 048
     Dates: start: 20120705
  10. PHENERGAN                          /00033001/ [Concomitant]
     Indication: NAUSEA
     Dosage: 25 mg, prn
     Dates: start: 20120705

REACTIONS (4)
  - Tooth abscess [Not Recovered/Not Resolved]
  - Toothache [Not Recovered/Not Resolved]
  - Pain in jaw [Recovered/Resolved]
  - Tooth fracture [Unknown]
